FAERS Safety Report 17106842 (Version 1)
Quarter: 2019Q4

REPORT INFORMATION
  Report Type: Spontaneous
  Country: FR (occurrence: FR)
  Receive Date: 20191203
  Receipt Date: 20191203
  Transmission Date: 20200122
  Serious: Yes (Other)
  Sender: FDA-Public Use
  Company Number: FR-MYLANLABS-2019M1116443

PATIENT
  Age: 24 Year
  Sex: Female
  Weight: 35 kg

DRUGS (12)
  1. CLOMIPRAMINE (CHLORHYDRATE) MYLAN 25 MG, COMPRIM? PELLICUL? [Suspect]
     Active Substance: CLOMIPRAMINE HYDROCHLORIDE
     Indication: ANOREXIA NERVOSA
     Dosage: 50 MILLIGRAM, QD
     Dates: start: 20190312, end: 20190522
  2. CLOMIPRAMINE [Concomitant]
     Active Substance: CLOMIPRAMINE
     Route: 048
  3. SERESTA [Concomitant]
     Active Substance: OXAZEPAM
     Dosage: 30 MILLIGRAM, QD
     Route: 048
  4. CLOMIPRAMINE (CHLORHYDRATE) MYLAN 10 MG, COMPRIM? PELLICUL? [Suspect]
     Active Substance: CLOMIPRAMINE HYDROCHLORIDE
     Indication: ANOREXIA NERVOSA
     Dosage: 10 MILLIGRAM, QD
     Route: 048
     Dates: start: 20190312, end: 20190517
  5. FORLAX [Concomitant]
     Active Substance: POLYETHYLENE GLYCOL 4000
     Dosage: UNK
     Route: 048
  6. BEVITINE [Concomitant]
     Active Substance: THIAMINE HYDROCHLORIDE
     Dosage: 6 DOSAGE FORM, QD
     Route: 048
  7. METEOSPASMYL (ALVERINE CITRATE\DIMETHICONE) [Concomitant]
     Active Substance: ALVERINE CITRATE\DIMETHICONE
     Dosage: UNK
     Route: 048
  8. GAVISCON                           /00237601/ [Concomitant]
     Active Substance: ALUMINUM HYDROXIDE\MAGNESIUM CARBONATE
     Dosage: 3 DOSAGE FORM, QD
     Route: 048
  9. AERIUS (DESLORATADINE) [Concomitant]
     Active Substance: DESLORATADINE
     Dosage: 1 DOSAGE FORM, QD
     Route: 048
  10. FLUOXETINE [Concomitant]
     Active Substance: FLUOXETINE HYDROCHLORIDE
     Dosage: 60 MILLIGRAM, QD
     Route: 048
  11. PANTOPRAZOLE [Concomitant]
     Active Substance: PANTOPRAZOLE
     Dosage: 20 MILLIGRAM, QD
     Route: 048
  12. NALTREXONE                         /00723402/ [Concomitant]
     Active Substance: NALTREXONE
     Dosage: 50 MILLIGRAM, QD
     Route: 048

REACTIONS (1)
  - Hepatocellular injury [Recovering/Resolving]

NARRATIVE: CASE EVENT DATE: 20190506
